FAERS Safety Report 14161469 (Version 5)
Quarter: 2017Q4

REPORT INFORMATION
  Report Type: Spontaneous
  Country: US (occurrence: US)
  Receive Date: 20171106
  Receipt Date: 20171215
  Transmission Date: 20180321
  Serious: Yes (Death, Life-Threatening, Hospitalization, Other)
  Sender: FDA-Public Use
  Company Number: US-JNJFOC-20171100484

PATIENT
  Age: 66 Year
  Sex: Male

DRUGS (1)
  1. DARZALEX [Suspect]
     Active Substance: DARATUMUMAB
     Indication: PLASMA CELL MYELOMA
     Route: 042
     Dates: start: 201703

REACTIONS (12)
  - Chest pain [Unknown]
  - Death [Fatal]
  - Plasma cell myeloma recurrent [Unknown]
  - Blood calcium abnormal [Unknown]
  - Asthenia [Unknown]
  - Pneumonia [Not Recovered/Not Resolved]
  - Palpitations [Unknown]
  - Bone pain [Unknown]
  - Multiple organ dysfunction syndrome [Unknown]
  - Sepsis [Not Recovered/Not Resolved]
  - Infusion related reaction [Unknown]
  - Feeling abnormal [Unknown]

NARRATIVE: CASE EVENT DATE: 201704
